FAERS Safety Report 25408473 (Version 1)
Quarter: 2025Q2

REPORT INFORMATION
  Report Type: Report from Study
  Country: US (occurrence: US)
  Receive Date: 20250606
  Receipt Date: 20250606
  Transmission Date: 20250717
  Serious: Yes (Hospitalization)
  Sender: ALEXION PHARMACEUTICALS
  Company Number: US-AstraZeneca-CH-00883009A

PATIENT

DRUGS (1)
  1. OLAPARIB [Suspect]
     Active Substance: OLAPARIB
     Indication: Genital neoplasm malignant female
     Dosage: 150 MILLIGRAM, BID

REACTIONS (3)
  - Hypoaesthesia oral [Unknown]
  - Rash macular [Recovered/Resolved]
  - Paraesthesia [Unknown]
